FAERS Safety Report 4907799-6 (Version None)
Quarter: 2006Q1

REPORT INFORMATION
  Report Type: 
  Country: None (occurrence: None)
  Receive Date: 20060208
  Receipt Date: 20060124
  Transmission Date: 20060701
  Serious: No
  Sender: FDA-Public Use
  Company Number: 3370JN

PATIENT
  Age: 55 Year
  Sex: Male
  Weight: 114 kg

DRUGS (6)
  1. COLGATE [Suspect]
     Indication: GINGIVITIS
     Dosage: 2X/DAY, ORAL
     Route: 048
     Dates: start: 20031201, end: 20051017
  2. COLGATE [Suspect]
     Indication: MOUTH PLAQUE
     Dosage: 2X/DAY, ORAL
     Route: 048
     Dates: start: 20031201, end: 20051017
  3. ASPIRIN [Concomitant]
  4. METOPROLOL [Concomitant]
  5. LISINOPRIL [Concomitant]
  6. ATORVASTATIN CALCIUM [Concomitant]

REACTIONS (2)
  - CARDIOVASCULAR DISORDER [None]
  - SUDDEN CARDIAC DEATH [None]
